FAERS Safety Report 18916223 (Version 3)
Quarter: 2024Q4

REPORT INFORMATION
  Report Type: Spontaneous
  Country: HR (occurrence: HR)
  Receive Date: 20210218
  Receipt Date: 20241021
  Transmission Date: 20250114
  Serious: Yes (Death, Hospitalization, Other)
  Sender: JOHNSON AND JOHNSON
  Company Number: None

PATIENT
  Age: 59 Year
  Sex: Female
  Weight: 80 kg

DRUGS (4)
  1. XARELTO [Suspect]
     Active Substance: RIVAROXABAN
     Indication: Aortic thrombosis
     Dosage: 15 MG, BID
     Route: 048
     Dates: start: 20200811, end: 20201226
  2. XARELTO [Suspect]
     Active Substance: RIVAROXABAN
     Indication: Hypercoagulation
     Route: 048
  3. AMOXICILLIN\CLAVULANIC ACID [Suspect]
     Active Substance: AMOXICILLIN\CLAVULANIC ACID
     Indication: COVID-19
     Dosage: UNK
     Route: 048
  4. CEFUROXIME SODIUM [Concomitant]
     Active Substance: CEFUROXIME SODIUM
     Indication: Product used for unknown indication

REACTIONS (8)
  - Acute hepatic failure [Fatal]
  - Drug-induced liver injury [Fatal]
  - Brain oedema [Fatal]
  - Coma hepatic [Fatal]
  - Respiratory failure [Fatal]
  - Hepatic encephalopathy [Fatal]
  - Generalised tonic-clonic seizure [Fatal]
  - Off label use [Unknown]

NARRATIVE: CASE EVENT DATE: 20201201
